FAERS Safety Report 21030027 (Version 1)
Quarter: 2022Q3

REPORT INFORMATION
  Report Type: Spontaneous
  Country: US (occurrence: None)
  Receive Date: 20220701
  Receipt Date: 20220701
  Transmission Date: 20221027
  Serious: No
  Sender: FDA-Public Use
  Company Number: US-ROCHE-2964909

PATIENT
  Sex: Female
  Weight: 49.940 kg

DRUGS (5)
  1. ACTEMRA [Suspect]
     Active Substance: TOCILIZUMAB
     Indication: Giant cell arteritis
     Dosage: ONGOING- NO
     Route: 058
     Dates: start: 2018, end: 2019
  2. ACTEMRA [Suspect]
     Active Substance: TOCILIZUMAB
     Dosage: TAPERED DOSE BY PHYSICIAN EXTENDED WEEKLY INTERVALS ;ONGOING: YES
     Route: 058
  3. PREDNISONE [Concomitant]
     Active Substance: PREDNISONE
     Indication: Giant cell arteritis
  4. IMURAN [Concomitant]
     Active Substance: AZATHIOPRINE
     Indication: Giant cell arteritis
  5. BONIVA [Concomitant]
     Active Substance: IBANDRONATE SODIUM
     Indication: Osteoporosis

REACTIONS (2)
  - Off label use [Unknown]
  - Blood cholesterol increased [Not Recovered/Not Resolved]

NARRATIVE: CASE EVENT DATE: 20180101
